FAERS Safety Report 15255299 (Version 1)
Quarter: 2018Q3

REPORT INFORMATION
  Report Type: Spontaneous
  Country: FR (occurrence: FR)
  Receive Date: 20180808
  Receipt Date: 20180808
  Transmission Date: 20181010
  Serious: Yes (Other)
  Sender: FDA-Public Use
  Company Number: FR-PFIZER INC-2018314735

PATIENT
  Age: 43 Year
  Sex: Female

DRUGS (1)
  1. RELPAX [Suspect]
     Active Substance: ELETRIPTAN HYDROBROMIDE
     Dosage: UNK, ONCE A WEEK

REACTIONS (3)
  - Cardiomyopathy [Unknown]
  - Cardiac dysfunction [Unknown]
  - Condition aggravated [Unknown]
